FAERS Safety Report 8126156-5 (Version None)
Quarter: 2012Q1

REPORT INFORMATION
  Report Type: 
  Country: None (occurrence: None)
  Receive Date: 20120209
  Receipt Date: 20120206
  Transmission Date: 20120608
  Serious: Yes (Death)
  Sender: FDA-Public Use
  Company Number: PHHY2012NL009981

PATIENT
  Sex: Female

DRUGS (3)
  1. ZOMETA [Suspect]
     Dosage: 4MG/100ML, ONCE PER 28 DAYS
     Route: 042
     Dates: start: 20120109
  2. ZOMETA [Suspect]
     Dosage: 4MG/100ML, ONCE PER 28 DAYS
     Route: 042
     Dates: start: 20111207
  3. ZOMETA [Suspect]
     Indication: BREAST CANCER METASTATIC
     Dosage: 4MG/100ML, ONCE PER 28 DAYS
     Route: 042
     Dates: start: 20110121

REACTIONS (1)
  - DEATH [None]
